FAERS Safety Report 20325294 (Version 1)
Quarter: 2022Q1

REPORT INFORMATION
  Report Type: Spontaneous
  Country: US (occurrence: US)
  Receive Date: 20220112
  Receipt Date: 20220112
  Transmission Date: 20220423
  Serious: No
  Sender: FDA-Public Use
  Company Number: US-drreddys-SPO/USA/22/0145683

PATIENT
  Age: 16 Year
  Sex: Male

DRUGS (1)
  1. ZENATANE [Suspect]
     Active Substance: ISOTRETINOIN
     Indication: Product used for unknown indication
     Dosage: RMA ISSUE DATE :18 NOVEMBER 2021 12:00:00 AM, 06 OCTOBER 2021 12:00:00 AM, 02 SEPTEMBER 2021 12:00:0
     Dates: start: 20210623, end: 20220105

REACTIONS (1)
  - Treatment noncompliance [Unknown]
